FAERS Safety Report 7471338-9 (Version None)
Quarter: 2011Q2

REPORT INFORMATION
  Report Type: 
  Country: None (occurrence: None)
  Receive Date: 20110510
  Receipt Date: 20110504
  Transmission Date: 20111010
  Serious: Yes (Hospitalization)
  Sender: FDA-Public Use
  Company Number: US-MERCK-1105USA00899

PATIENT
  Age: 58 Year
  Sex: Male

DRUGS (3)
  1. PRAVASTATIN SODIUM [Concomitant]
     Route: 065
  2. ZETIA [Concomitant]
     Route: 048
  3. JANUVIA [Suspect]
     Indication: TYPE 2 DIABETES MELLITUS
     Route: 048
     Dates: end: 20110422

REACTIONS (1)
  - HEPATITIS [None]
